FAERS Safety Report 25918569 (Version 1)
Quarter: 2025Q4

REPORT INFORMATION
  Report Type: Report from Study
  Country: US (occurrence: US)
  Receive Date: 20251014
  Receipt Date: 20251014
  Transmission Date: 20260117
  Serious: Yes (Death, Other)
  Sender: RANBAXY
  Company Number: US-SUN PHARMACEUTICAL INDUSTRIES INC-2025R1-531356

PATIENT
  Age: 75 Year
  Sex: Female

DRUGS (4)
  1. METHADONE [Suspect]
     Active Substance: METHADONE HYDROCHLORIDE
     Indication: Non-small cell lung cancer
     Dosage: 10 MILLIGRAM, TID
     Route: 065
  2. METHADONE [Suspect]
     Active Substance: METHADONE HYDROCHLORIDE
     Dosage: 25 MILLIGRAM
     Route: 065
  3. HYDROMORPHONE [Suspect]
     Active Substance: HYDROMORPHONE
     Indication: Non-small cell lung cancer
     Dosage: 12 MILLIGRAM, EVERY 3 HOURS
     Route: 065
  4. KETAMINE [Suspect]
     Active Substance: KETAMINE
     Indication: Non-small cell lung cancer
     Dosage: 10 MILLIGRAM, QD
     Route: 048

REACTIONS (1)
  - Disease progression [Fatal]
